FAERS Safety Report 9935339 (Version 2)
Quarter: 2014Q1

REPORT INFORMATION
  Report Type: Spontaneous
  Country: US (occurrence: US)
  Receive Date: 20140228
  Receipt Date: 20140228
  Transmission Date: 20141002
  Serious: No
  Sender: FDA-Public Use
  Company Number: US-PFIZER INC-2013141534

PATIENT
  Age: 44 Year
  Sex: Male
  Weight: 117.91 kg

DRUGS (2)
  1. VIAGRA [Suspect]
     Indication: ERECTILE DYSFUNCTION
     Dosage: 50 MG, AS NEEDED
  2. VICODIN [Concomitant]
     Indication: ARTHRALGIA
     Dosage: 750 MG, 2X/DAY

REACTIONS (1)
  - Drug effect incomplete [Unknown]
